FAERS Safety Report 24323991 (Version 1)
Quarter: 2024Q3

REPORT INFORMATION
  Report Type: Spontaneous
  Country: US (occurrence: None)
  Receive Date: 20240915
  Receipt Date: 20240915
  Transmission Date: 20241017
  Serious: Yes (Death, Life-Threatening, Hospitalization)
  Sender: Public
  Company Number: None

PATIENT
  Age: 81 Year
  Sex: Female
  Weight: 137.25 kg

DRUGS (6)
  1. KEVZARA [Suspect]
     Active Substance: SARILUMAB
     Indication: Polymyalgia rheumatica
  2. LISINOPRIL [Concomitant]
     Active Substance: LISINOPRIL
  3. Oxysymeter [Concomitant]
  4. blood pressure meter [Concomitant]
  5. blood sugar measure [Concomitant]
  6. Home O2 [Concomitant]

REACTIONS (6)
  - Heart valve replacement [None]
  - Product communication issue [None]
  - Drug interaction [None]
  - Drug hypersensitivity [None]
  - Circumstance or information capable of leading to medication error [None]
  - Patient dissatisfaction with treatment [None]

NARRATIVE: CASE EVENT DATE: 20230717
